APPROVED DRUG PRODUCT: FELODIPINE
Active Ingredient: FELODIPINE
Strength: 5MG
Dosage Form/Route: TABLET, EXTENDED RELEASE;ORAL
Application: A075896 | Product #002
Applicant: SUN PHARMACEUTICAL INDUSTRIES INC
Approved: Nov 2, 2004 | RLD: No | RS: No | Type: DISCN